FAERS Safety Report 13359966 (Version 1)
Quarter: 2017Q1

REPORT INFORMATION
  Report Type: Spontaneous
  Country: US (occurrence: US)
  Receive Date: 20170322
  Receipt Date: 20170322
  Transmission Date: 20170429
  Serious: Yes (Other)
  Sender: FDA-Public Use
  Company Number: US-SA-2017SA043042

PATIENT
  Age: 46 Year
  Sex: Female

DRUGS (7)
  1. NEURONTIN [Suspect]
     Active Substance: GABAPENTIN
     Route: 065
  2. TECFIDERA [Suspect]
     Active Substance: DIMETHYL FUMARATE
     Indication: MULTIPLE SCLEROSIS
     Dosage: STARTING DOSE OF 120 MG AND MAINTENANCE DOSE OF 240 MG BID
     Route: 048
  3. RITALIN [Concomitant]
     Active Substance: METHYLPHENIDATE HYDROCHLORIDE
  4. AUBAGIO [Suspect]
     Active Substance: TERIFLUNOMIDE
     Indication: MULTIPLE SCLEROSIS
     Route: 065
     Dates: start: 201610, end: 201701
  5. PROVIGIL [Concomitant]
     Active Substance: MODAFINIL
  6. AMPYRA [Suspect]
     Active Substance: DALFAMPRIDINE
     Route: 065
  7. BETASERON [Suspect]
     Active Substance: INTERFERON BETA-1B
     Route: 065

REACTIONS (3)
  - Alopecia [Unknown]
  - Pain [Unknown]
  - Cellulitis [Unknown]
